FAERS Safety Report 6108020-6 (Version None)
Quarter: 2009Q1

REPORT INFORMATION
  Report Type: 
  Country: None (occurrence: None)
  Receive Date: 20090309
  Receipt Date: 20090226
  Transmission Date: 20090719
  Serious: Yes (Hospitalization)
  Sender: FDA-Public Use
  Company Number: US-AVENTIS-200910307US

PATIENT
  Age: 68 Year
  Sex: Male

DRUGS (5)
  1. LANTUS [Suspect]
     Route: 058
  2. LANTUS [Suspect]
     Dosage: DOSE: 40 - 120
     Route: 058
     Dates: start: 20080101
  3. OPTICLIK (INSULIN INJECTION PEN) [Suspect]
     Dates: start: 20060101
  4. BYETTA [Concomitant]
     Dosage: FREQUENCY: BEFORE MEALS
     Dates: end: 20090101
  5. HUMALOG [Concomitant]
     Dosage: DOSE: UNK

REACTIONS (6)
  - BLOOD GLUCOSE INCREASED [None]
  - DRUG INEFFECTIVE [None]
  - DYSPNOEA [None]
  - PULMONARY OEDEMA [None]
  - VISUAL IMPAIRMENT [None]
  - WEIGHT INCREASED [None]
